FAERS Safety Report 12926296 (Version 1)
Quarter: 2016Q4

REPORT INFORMATION
  Report Type: Spontaneous
  Country: CN (occurrence: CN)
  Receive Date: 20161109
  Receipt Date: 20161109
  Transmission Date: 20170207
  Serious: Yes (Life-Threatening)
  Sender: FDA-Public Use
  Company Number: PHHY2016CN153207

PATIENT
  Age: 84 Year
  Sex: Male
  Weight: 50 kg

DRUGS (2)
  1. ENTACAPONE. [Suspect]
     Active Substance: ENTACAPONE
     Indication: PARKINSON^S DISEASE
     Dosage: 0.1 G, TID
     Route: 048
     Dates: start: 20160709, end: 20160720
  2. BENSERAZIDE [Suspect]
     Active Substance: BENSERAZIDE
     Indication: PARKINSON^S DISEASE
     Dosage: 250 MG, TID
     Route: 048
     Dates: start: 20160709, end: 20160720

REACTIONS (1)
  - Hypotension [Recovered/Resolved]

NARRATIVE: CASE EVENT DATE: 20160720
